FAERS Safety Report 23137540 (Version 3)
Quarter: 2024Q1

REPORT INFORMATION
  Report Type: Report from Study
  Country: US (occurrence: US)
  Receive Date: 20231102
  Receipt Date: 20240306
  Transmission Date: 20240410
  Serious: Yes (Hospitalization, Other)
  Sender: FDA-Public Use
  Company Number: US-002147023-NVSC2023US232088

PATIENT
  Sex: Male

DRUGS (1)
  1. ENTRESTO [Suspect]
     Active Substance: SACUBITRIL\VALSARTAN
     Indication: Product used for unknown indication
     Dosage: 1 DOSAGE FORM, BID
     Route: 065

REACTIONS (17)
  - COVID-19 [Unknown]
  - Cough [Unknown]
  - Malaise [Unknown]
  - Atrial fibrillation [Unknown]
  - Renal failure [Unknown]
  - Confusional state [Unknown]
  - Weight fluctuation [Unknown]
  - Dyspnoea [Unknown]
  - Tremor [Unknown]
  - Visual impairment [Unknown]
  - Heart rate increased [Unknown]
  - Hypertension [Unknown]
  - Fatigue [Unknown]
  - Asthenia [Unknown]
  - Anaemia [Unknown]
  - Dizziness [Unknown]
  - Product dose omission issue [Unknown]
